FAERS Safety Report 9235845 (Version 1)
Quarter: 2013Q1

REPORT INFORMATION
  Report Type: Spontaneous
  Country: US (occurrence: None)
  Receive Date: 20121031
  Receipt Date: 20121031
  Transmission Date: 20140127
  Serious: Yes (Hospitalization)
  Sender: FDA-Public Use
  Company Number: PHEH2012US011607

PATIENT
  Age: 47 Year
  Sex: Male
  Weight: 113.4 kg

DRUGS (10)
  1. GILENYA [Suspect]
     Indication: RELAPSING-REMITTING MULTIPLE SCLEROSIS
     Route: 048
     Dates: start: 20120531
  2. SINGULAIR [Concomitant]
  3. ALLEGRA [Concomitant]
  4. IBUPROFEN (IBUPROFEN) [Concomitant]
  5. ADVAIR DISKUS (FLUTICASONE PROPIONATE, SALMETEROL XINAFOATE) [Concomitant]
  6. FISH OIL (FISH OIL) [Concomitant]
  7. MULTIVITAMINS (ASCORBIC ACID, ERGOCALCIFEROL, FOLIC ACID, NICOTINAMIDE, PANTHENOL, RETINOL, RIBOFLAVIN, THIAMINE HYDROCHLORIDE) [Concomitant]
  8. VITAMIN D (ERGOCALCIFEROL) [Concomitant]
  9. VITAMIN C + E CAPLETS (ASCORBIC ACID, TOCOPHEROL) [Concomitant]
  10. VITAMIN D3 (COLECALCIFEROL) [Concomitant]

REACTIONS (4)
  - Sinus bradycardia [None]
  - Back pain [None]
  - Headache [None]
  - Fatigue [None]
